FAERS Safety Report 8710649 (Version 5)
Quarter: 2012Q4

REPORT INFORMATION
  Report Type: Report from Study
  Country: DE (occurrence: DE)
  Receive Date: 20120807
  Receipt Date: 20121121
  Transmission Date: 20130627
  Serious: Yes (Life-Threatening)
  Sender: FDA-Public Use
  Company Number: DE-009507513-1208DEU001649

PATIENT
  Age: 71 Year
  Sex: Male
  Weight: 60.3 kg

DRUGS (1)
  1. POSACONAZOLE [Suspect]
     Indication: ANTIFUNGAL PROPHYLAXIS
     Dosage: 300 mg, bid
     Route: 042
     Dates: start: 20120730, end: 20120802

REACTIONS (1)
  - Pulmonary mycosis [Not Recovered/Not Resolved]
